FAERS Safety Report 5060895-8 (Version None)
Quarter: 2006Q3

REPORT INFORMATION
  Report Type: 
  Country: None (occurrence: None)
  Receive Date: 20060719
  Receipt Date: 20060719
  Transmission Date: 20061208
  Serious: Yes (Life-Threatening, Hospitalization, Disabling, Other)
  Sender: FDA-Public Use
  Company Number: None

PATIENT
  Sex: Female
  Weight: 50.8029 kg

DRUGS (1)
  1. VALIUM [Suspect]
     Indication: NERVOUS SYSTEM DISORDER
     Dosage: 3 A DAY

REACTIONS (6)
  - ABDOMINAL PAIN [None]
  - FEELING ABNORMAL [None]
  - HAEMATOCHEZIA [None]
  - HYPERCHLORHYDRIA [None]
  - PAIN [None]
  - PH URINE DECREASED [None]
